FAERS Safety Report 4614143-0 (Version None)
Quarter: 2005Q1

REPORT INFORMATION
  Report Type: 
  Country: None (occurrence: None)
  Receive Date: 20050316
  Receipt Date: 20050310
  Transmission Date: 20050727
  Serious: Yes (Death, Hospitalization)
  Sender: FDA-Public Use
  Company Number: 200510594GDS

PATIENT
  Age: 63 Year
  Sex: Female

DRUGS (4)
  1. ADIRO 100 (ACETYLSALICYLIC ACID) [Suspect]
     Indication: ACUTE MYOCARDIAL INFARCTION
     Dosage: 100 MG, QD, ORAL
     Route: 048
     Dates: start: 20030210
  2. ACTILYSE 100 MG (ALTEPLASE) [Suspect]
     Indication: ACUTE MYOCARDIAL INFARCTION
     Dosage: 100 MG, TOTAL DAILY, INTRAVENOUS
     Route: 042
     Dates: start: 20030210
  3. HEPARIN [Suspect]
     Indication: ACUTE MYOCARDIAL INFARCTION
     Dosage: INTRAVENOUS
     Route: 042
     Dates: start: 20030210
  4. OMEPRAZOLE [Concomitant]

REACTIONS (7)
  - CEREBRAL HAEMORRHAGE [None]
  - COMA [None]
  - DRUG INTERACTION [None]
  - HERNIA [None]
  - HYDROCEPHALUS [None]
  - MOTOR DYSFUNCTION [None]
  - PUPILS UNEQUAL [None]
